FAERS Safety Report 15620871 (Version 1)
Quarter: 2018Q4

REPORT INFORMATION
  Report Type: Spontaneous
  Country: US (occurrence: US)
  Receive Date: 20181115
  Receipt Date: 20181115
  Transmission Date: 20190205
  Serious: No
  Sender: FDA-Public Use
  Company Number: US-SA-2018SA314433

PATIENT
  Sex: Male

DRUGS (4)
  1. AZULFIDINE [Concomitant]
     Active Substance: SULFASALAZINE
     Dosage: UNK
     Dates: start: 2018
  2. ENBREL [Concomitant]
     Active Substance: ETANERCEPT
     Dosage: UNK
     Dates: start: 2017
  3. ARAVA [Suspect]
     Active Substance: LEFLUNOMIDE
     Indication: RHEUMATOID ARTHRITIS
     Dosage: UNK
     Dates: start: 2007
  4. HUMIRA [Concomitant]
     Active Substance: ADALIMUMAB
     Dosage: UNK
     Dates: start: 2018

REACTIONS (1)
  - Drug ineffective [Unknown]
